FAERS Safety Report 5895077-0 (Version None)
Quarter: 2008Q3

REPORT INFORMATION
  Report Type: 
  Country: None (occurrence: None)
  Receive Date: 20080924
  Receipt Date: 20080918
  Transmission Date: 20090109
  Serious: Yes (Other)
  Sender: FDA-Public Use
  Company Number: IE-BRISTOL-MYERS SQUIBB COMPANY-14238596

PATIENT

DRUGS (1)
  1. ABILIFY [Suspect]

REACTIONS (1)
  - RENAL FAILURE ACUTE [None]
